FAERS Safety Report 4762299-1 (Version None)
Quarter: 2005Q3

REPORT INFORMATION
  Report Type: 
  Country: None (occurrence: None)
  Receive Date: 20050901
  Receipt Date: 20050512
  Transmission Date: 20060218
  Serious: No
  Sender: FDA-Public Use
  Company Number: 200510953BWH

PATIENT
  Age: 73 Year
  Sex: Male

DRUGS (13)
  1. LEVITRA [Suspect]
     Indication: ERECTILE DYSFUNCTION
     Dosage: 30 MG, TOTAL DAILY, ORAL
     Route: 048
     Dates: start: 20050511
  2. PROPYLTHIOURACIL [Concomitant]
  3. VITAMIN E [Concomitant]
  4. GLUCOSAMINE [Concomitant]
  5. POTASSIUM [Concomitant]
  6. TOPROL-XL [Concomitant]
  7. ASPIRIN [Concomitant]
  8. CALCIUM+D [Concomitant]
  9. ULTRACET [Concomitant]
  10. ULTRAM [Concomitant]
  11. MELATONIN [Concomitant]
  12. VIAGRA [Concomitant]
  13. ADALAT [Concomitant]

REACTIONS (1)
  - ERECTILE DYSFUNCTION [None]
